FAERS Safety Report 21899011 (Version 2)
Quarter: 2023Q1

REPORT INFORMATION
  Report Type: Spontaneous
  Country: GB (occurrence: GB)
  Receive Date: 20230123
  Receipt Date: 20230209
  Transmission Date: 20230417
  Serious: Yes (Life-Threatening, Other)
  Sender: FDA-Public Use
  Company Number: None

PATIENT
  Age: 55 Year
  Sex: Male
  Weight: 71.2 kg

DRUGS (6)
  1. ADALIMUMAB [Suspect]
     Active Substance: ADALIMUMAB
     Indication: Product used for unknown indication
     Dosage: 20 MILLIGRAM, QW (20MG/0.2ML)
     Route: 065
     Dates: start: 20220701
  2. COCODAMOL [Concomitant]
     Active Substance: ACETAMINOPHEN\CODEINE PHOSPHATE
     Dosage: (ONE OR TWO TO BE TAKEN FOUR TIMES A DAY. 30MG/500MG)
     Route: 065
     Dates: start: 20221202
  3. SENNA [Concomitant]
     Active Substance: SENNA LEAF\SENNOSIDES\SENNOSIDES A AND B
     Dosage: 15 MILLIGRAM, QD (AT NIGHT WHILST ON COCODAMOL)
     Route: 065
     Dates: start: 20221202
  4. ZOPICLONE [Concomitant]
     Active Substance: ZOPICLONE
     Dosage: 7.5 MILLIGRAM, QD (NIGHT, SHORT TERM, OCCASIONAL USE.NOT TO USE MORE THAN 2-3 CONSECUTIVE NIGHTS)
     Route: 065
     Dates: start: 20221202
  5. STREPTOCOCCUS PNEUMONIAE [Concomitant]
     Indication: Pneumococcal immunisation
     Dosage: UNK
     Route: 065
     Dates: start: 20221203, end: 20221203
  6. INFLUENZA VIRUS VACCINE [Concomitant]
     Active Substance: INFLUENZA VIRUS VACCINE
     Indication: Influenza immunisation
     Dosage: UNK
     Route: 065
     Dates: start: 20221203, end: 20221203

REACTIONS (7)
  - Night sweats [Unknown]
  - Presyncope [Unknown]
  - Sepsis [Not Recovered/Not Resolved]
  - Pyrexia [Not Recovered/Not Resolved]
  - Pharyngitis [Unknown]
  - Cough [Unknown]
  - Intentional product misuse [Unknown]

NARRATIVE: CASE EVENT DATE: 20230102
